FAERS Safety Report 4905271-0 (Version None)
Quarter: 2006Q1

REPORT INFORMATION
  Report Type: 
  Country: None (occurrence: None)
  Receive Date: 20060208
  Receipt Date: 20051130
  Transmission Date: 20060701
  Serious: No
  Sender: FDA-Public Use
  Company Number: US-GLAXOSMITHKLINE-A0584909A

PATIENT
  Sex: Male

DRUGS (4)
  1. PAXIL [Suspect]
     Indication: ANXIETY DISORDER
     Route: 048
     Dates: end: 20030601
  2. VALIUM [Concomitant]
  3. LEXAPRO [Concomitant]
  4. NEURONTIN [Concomitant]

REACTIONS (1)
  - DRUG WITHDRAWAL SYNDROME [None]
